FAERS Safety Report 5794259-6 (Version None)
Quarter: 2008Q2

REPORT INFORMATION
  Report Type: 
  Country: None (occurrence: None)
  Receive Date: 20080627
  Receipt Date: 20080617
  Transmission Date: 20081010
  Serious: Yes (Other)
  Sender: FDA-Public Use
  Company Number: US-PFIZER INC-2008051661

PATIENT
  Sex: Male
  Weight: 77.1 kg

DRUGS (14)
  1. GABAPENTIN [Suspect]
     Indication: NERVOUS SYSTEM DISORDER
  2. LYRICA [Suspect]
     Indication: NEURALGIA
  3. CODEINE [Concomitant]
  4. VALIUM [Concomitant]
     Indication: MUSCLE SPASMS
  5. AMBIEN [Concomitant]
     Indication: SLEEP DISORDER
  6. BACLOFEN [Concomitant]
  7. BETAPACE [Concomitant]
  8. WARFARIN SODIUM [Concomitant]
  9. PREVACID [Concomitant]
  10. NORVASC [Concomitant]
  11. VITAMIN CAP [Concomitant]
  12. NIFEREX [Concomitant]
  13. LASIX [Concomitant]
  14. ZANTAC [Concomitant]

REACTIONS (9)
  - AGGRESSION [None]
  - DIARRHOEA [None]
  - DRUG INEFFECTIVE [None]
  - DRY MOUTH [None]
  - EUPHORIC MOOD [None]
  - FEELING ABNORMAL [None]
  - HYPOAESTHESIA [None]
  - UNEVALUABLE EVENT [None]
  - VISION BLURRED [None]
